FAERS Safety Report 10947422 (Version 2)
Quarter: 2015Q2

REPORT INFORMATION
  Report Type: Spontaneous
  Country: US (occurrence: None)
  Receive Date: 20150220
  Receipt Date: 20150522
  Transmission Date: 20150821
  Serious: Yes (Other)
  Sender: FDA-Public Use
  Company Number: 1000072831

PATIENT
  Sex: Female

DRUGS (2)
  1. FETZIMA [Suspect]
     Active Substance: LEVOMILNACIPRAN HYDROCHLORIDE
     Route: 048
     Dates: start: 201405, end: 201412
  2. ZARAH (DROSPIRENONE W/ETHINYLESTRADIOL) [Concomitant]

REACTIONS (1)
  - Hypertension [None]

NARRATIVE: CASE EVENT DATE: 201411
